FAERS Safety Report 26207823 (Version 1)
Quarter: 2025Q4

REPORT INFORMATION
  Report Type: Spontaneous
  Country: US (occurrence: None)
  Receive Date: 20251225
  Receipt Date: 20251225
  Transmission Date: 20260117
  Serious: Yes (Other)
  Sender: FDA-CTU
  Company Number: None

PATIENT
  Age: 52 Year
  Sex: Male
  Weight: 90 kg

DRUGS (2)
  1. HOMEOPATHICS\ZINC ACETATE\ZINC GLUCONATE [Suspect]
     Active Substance: HOMEOPATHICS\ZINC ACETATE\ZINC GLUCONATE
     Indication: Nasopharyngitis
     Dosage: FREQUENCY : AS NEEDED;
     Route: 048
     Dates: start: 20251223, end: 20251223
  2. EMERGEN-C [Suspect]
     Active Substance: VITAMINS
     Indication: Nasopharyngitis
     Dosage: FREQUENCY : AS NEEDED;
     Dates: start: 20251223, end: 20251223

REACTIONS (1)
  - Vertigo [None]

NARRATIVE: CASE EVENT DATE: 20251223
